FAERS Safety Report 9478399 (Version 2)
Quarter: 2013Q4

REPORT INFORMATION
  Report Type: Report from Study
  Country: CA (occurrence: CA)
  Receive Date: 20130827
  Receipt Date: 20131206
  Transmission Date: 20140711
  Serious: Yes (Death, Other)
  Sender: FDA-Public Use
  Company Number: CA-JNJFOC-20130809987

PATIENT
  Age: 43 Year
  Sex: Male
  Weight: 75 kg

DRUGS (5)
  1. REMICADE [Suspect]
     Indication: CROHN^S DISEASE
     Dosage: INFUSION NO 39
     Route: 042
     Dates: start: 20130425, end: 20130425
  2. REMICADE [Suspect]
     Indication: CROHN^S DISEASE
     Dosage: INFUSION NO 39
     Route: 042
     Dates: start: 20070821, end: 201102
  3. IMURAN [Suspect]
     Indication: CROHN^S DISEASE
     Route: 048
  4. FLOVENT [Concomitant]
     Indication: ASTHMA
     Route: 055
  5. SALBUTAMOL [Concomitant]
     Indication: ASTHMA
     Route: 055

REACTIONS (2)
  - Neoplasm malignant [Fatal]
  - Spleen disorder [Unknown]
